FAERS Safety Report 10081168 (Version 2)
Quarter: 2014Q2

REPORT INFORMATION
  Report Type: Spontaneous
  Country: US (occurrence: US)
  Receive Date: 20140416
  Receipt Date: 20140416
  Transmission Date: 20141212
  Serious: Yes (Other)
  Sender: FDA-Public Use
  Company Number: US-SA-A03200602834

PATIENT
  Age: 38 Year
  Sex: Male

DRUGS (2)
  1. AMBIEN [Suspect]
     Indication: INSOMNIA
     Route: 048
     Dates: start: 2006
  2. PROMETHAZINE [Suspect]
     Indication: NAUSEA
     Route: 065
     Dates: start: 20060502

REACTIONS (9)
  - Road traffic accident [Recovered/Resolved]
  - Impaired driving ability [Recovered/Resolved]
  - Poisoning [Unknown]
  - Ocular hyperaemia [Unknown]
  - Disorientation [Unknown]
  - Gait disturbance [Unknown]
  - Amnesia [Not Recovered/Not Resolved]
  - Lacrimation increased [Unknown]
  - Dysarthria [Unknown]
